FAERS Safety Report 6893151-3 (Version None)
Quarter: 2010Q3

REPORT INFORMATION
  Report Type: 
  Country: None (occurrence: None)
  Receive Date: 20100731
  Receipt Date: 20090608
  Transmission Date: 20110219
  Serious: No
  Sender: FDA-Public Use
  Company Number: US-PFIZER INC-2009224209

PATIENT
  Sex: Female

DRUGS (3)
  1. FLAGYL [Suspect]
     Dosage: UNK
     Dates: start: 20080430, end: 20080505
  2. VANCOMYCIN HCL [Suspect]
     Indication: PNEUMONIA ASPIRATION
     Dosage: 1 G, UNK
     Route: 042
     Dates: start: 20080504, end: 20080505
  3. ZOSYN [Suspect]
     Dosage: UNK
     Dates: start: 20080502, end: 20080505

REACTIONS (1)
  - RASH [None]
